FAERS Safety Report 4867522-0 (Version None)
Quarter: 2005Q4

REPORT INFORMATION
  Report Type: 
  Country: None (occurrence: None)
  Receive Date: 20051222
  Receipt Date: 20051212
  Transmission Date: 20060501
  Serious: Yes (Hospitalization)
  Sender: FDA-Public Use
  Company Number: SU-2005-004390

PATIENT
  Age: 59 Year
  Sex: Male
  Weight: 90.7194 kg

DRUGS (2)
  1. BENICAR [Suspect]
     Indication: HYPERTENSION
     Dosage: 40 MG QD PO
     Route: 048
     Dates: start: 20051014, end: 20051018
  2. INSULIN [Concomitant]

REACTIONS (8)
  - BLOOD PRESSURE DECREASED [None]
  - HEADACHE [None]
  - HYPOAESTHESIA [None]
  - NEUROPATHY [None]
  - PARAESTHESIA [None]
  - PHARMACEUTICAL PRODUCT COMPLAINT [None]
  - THERAPEUTIC AGENT TOXICITY [None]
  - THERAPEUTIC RESPONSE UNEXPECTED WITH DRUG SUBSTITUTION [None]
